FAERS Safety Report 5346697-3 (Version None)
Quarter: 2007Q2

REPORT INFORMATION
  Report Type: 
  Country: None (occurrence: None)
  Receive Date: 20070605
  Receipt Date: 20070524
  Transmission Date: 20071010
  Serious: Yes (Death, Other)
  Sender: FDA-Public Use
  Company Number: GB-PFIZER INC-2007042843

PATIENT
  Age: 36 Year
  Sex: Male

DRUGS (4)
  1. IDARUBICIN HCL [Suspect]
     Indication: CHEMOTHERAPY
     Route: 042
  2. CYTOSINE ARABINOSIDE [Suspect]
     Indication: CHEMOTHERAPY
     Route: 042
  3. FLUDARABINE [Suspect]
     Indication: CHEMOTHERAPY
  4. FILGRASTIM [Suspect]
     Indication: CHEMOTHERAPY
     Route: 058

REACTIONS (4)
  - ACUTE MYELOID LEUKAEMIA [None]
  - FEBRILE NEUTROPENIA [None]
  - MULTI-ORGAN FAILURE [None]
  - NEUTROPENIC SEPSIS [None]
